FAERS Safety Report 4380780-4 (Version None)
Quarter: 2004Q2

REPORT INFORMATION
  Report Type: 
  Country: None (occurrence: None)
  Receive Date: 20040614
  Receipt Date: 20040601
  Transmission Date: 20050107
  Serious: Yes (Other)
  Sender: FDA-Public Use
  Company Number: US-JNJFOC-20040401330

PATIENT
  Age: 60 Year
  Sex: Male
  Weight: 108.8633 kg

DRUGS (8)
  1. REMICADE (INFLIXIMAB, RECOMBINANT) LYOPHILIZED POWDER [Suspect]
     Indication: RHEUMATOID ARTHRITIS
     Dosage: 500/600 MG/RESTARTED IN MAY-04
     Dates: start: 20031201
  2. REMICADE (INFLIXIMAB, RECOMBINANT) LYOPHILIZED POWDER [Suspect]
     Indication: RHEUMATOID ARTHRITIS
     Dosage: 500/600 MG/RESTARTED IN MAY-04
     Dates: start: 20040501
  3. HUMIRA (ALL OTHER THERAPEUTIC PRODUCTS) [Suspect]
     Indication: RHEUMATOID ARTHRITIS
     Dates: start: 20040201
  4. METHOTREXATE SODIUM [Concomitant]
  5. INDOCIN [Concomitant]
  6. FOLIC ACID [Concomitant]
  7. CALCIUM WITH D (CALCIUM WITH VITAMIN D) [Concomitant]
  8. FOSAMAX [Concomitant]

REACTIONS (5)
  - ARTERITIS [None]
  - DRUG INEFFECTIVE [None]
  - EAR INFECTION [None]
  - RHEUMATOID ARTHRITIS [None]
  - SINUSITIS [None]
